FAERS Safety Report 8317492-8 (Version None)
Quarter: 2012Q2

REPORT INFORMATION
  Report Type: 
  Country: None (occurrence: None)
  Receive Date: 20120427
  Receipt Date: 20120416
  Transmission Date: 20120825
  Serious: Yes (Other)
  Sender: FDA-Public Use
  Company Number: FR-JNJFOC-20120407835

PATIENT
  Age: 62 Year
  Sex: Female

DRUGS (5)
  1. REMICADE [Suspect]
     Indication: RHEUMATOID ARTHRITIS
     Route: 042
     Dates: start: 20120301
  2. REMICADE [Suspect]
     Route: 042
     Dates: start: 20021101, end: 20050701
  3. REMICADE [Suspect]
     Route: 042
     Dates: start: 20120226
  4. REMICADE [Suspect]
     Route: 042
     Dates: start: 20120216
  5. REMICADE [Suspect]
     Route: 042
     Dates: start: 20120329

REACTIONS (8)
  - DYSPNOEA [None]
  - FLUSHING [None]
  - MALAISE [None]
  - ANAPHYLACTOID REACTION [None]
  - LIP SWELLING [None]
  - ERYTHEMA [None]
  - INFUSION RELATED REACTION [None]
  - CHEST DISCOMFORT [None]
